FAERS Safety Report 4614657-3 (Version None)
Quarter: 2005Q2

REPORT INFORMATION
  Report Type: 
  Country: None (occurrence: None)
  Receive Date: 20050311
  Receipt Date: 20041129
  Transmission Date: 20051028
  Serious: No
  Sender: FDA-Public Use
  Company Number: 2004-BP-10907BP

PATIENT
  Age: 73 Year
  Sex: Male

DRUGS (7)
  1. SPIRIVA [Suspect]
     Indication: CHRONIC OBSTRUCTIVE PULMONARY DISEASE
     Dosage: 18 MCG (18 MCG), IH
     Route: 055
     Dates: start: 20040801
  2. SPIRIVA [Suspect]
  3. SEREVENT DISK (SALMETEROL XINAFOATE) [Concomitant]
  4. ALBUTEROL [Concomitant]
  5. SINGULAIR (MONTELUKAST) [Concomitant]
  6. FLOMAX [Concomitant]
  7. TRIAMCINOLONE ACETONIDE [Concomitant]

REACTIONS (3)
  - ARTHRALGIA [None]
  - DRY MOUTH [None]
  - DYSPNOEA EXERTIONAL [None]
